FAERS Safety Report 13208812 (Version 1)
Quarter: 2017Q1

REPORT INFORMATION
  Report Type: Spontaneous
  Country: US (occurrence: US)
  Receive Date: 20170209
  Receipt Date: 20170209
  Transmission Date: 20170428
  Serious: No
  Sender: FDA-Public Use
  Company Number: US-ROCHE-1739198

PATIENT
  Age: 28 Year
  Sex: Female

DRUGS (5)
  1. APAP [Concomitant]
     Active Substance: ACETAMINOPHEN
  2. PREDNISOLONE. [Concomitant]
     Active Substance: PREDNISOLONE
  3. NUTROPIN AQ [Suspect]
     Active Substance: SOMATROPIN
     Indication: PRODUCT USED FOR UNKNOWN INDICATION
     Route: 058
     Dates: start: 20160218
  4. IBUPROFEN. [Concomitant]
     Active Substance: IBUPROFEN
  5. ERYTHROMYCIN. [Concomitant]
     Active Substance: ERYTHROMYCIN

REACTIONS (1)
  - Vaginal haemorrhage [Recovered/Resolved]

NARRATIVE: CASE EVENT DATE: 201603
